FAERS Safety Report 6146667-1 (Version None)
Quarter: 2009Q2

REPORT INFORMATION
  Report Type: 
  Country: None (occurrence: None)
  Receive Date: 20090407
  Receipt Date: 20090330
  Transmission Date: 20091009
  Serious: Yes (Life-Threatening, Hospitalization, Other)
  Sender: FDA-Public Use
  Company Number: US-ELI_LILLY_AND_COMPANY-US200903007658

PATIENT
  Sex: Male

DRUGS (14)
  1. HUMALOG [Suspect]
     Dosage: UNK, AS NEEDED
     Dates: start: 19960101
  2. HUMALOG [Suspect]
     Dosage: 8.5 U, UNK
     Dates: start: 20090329
  3. HUMALOG [Suspect]
     Dosage: 10 U, UNK
     Dates: start: 20090330
  4. HUMALOG [Suspect]
     Dosage: 7 U, UNK
     Dates: start: 20090330
  5. HUMALOG [Suspect]
     Dosage: 8.4 U, UNK
     Dates: start: 20090330
  6. LANTUS [Concomitant]
     Dosage: 26 U, UNK
  7. PLAVIX [Concomitant]
  8. ASPIRIN [Concomitant]
  9. ALPRAZOLAM [Concomitant]
  10. LISINOPRIL [Concomitant]
  11. METOPROLOL [Concomitant]
  12. TYLENOL (CAPLET) [Concomitant]
  13. FLOMAX [Concomitant]
  14. DARVOCET [Concomitant]

REACTIONS (17)
  - ARTERIOSCLEROSIS [None]
  - BLOOD GLUCOSE INCREASED [None]
  - CARDIAC ARREST [None]
  - CATARACT [None]
  - COLITIS [None]
  - COLONOSCOPY [None]
  - DEHYDRATION [None]
  - DIABETIC RETINOPATHY [None]
  - EXERCISE ELECTROCARDIOGRAM [None]
  - HAEMORRHOIDS [None]
  - HERPES ZOSTER [None]
  - INSOMNIA [None]
  - NAUSEA [None]
  - NEUROPATHY PERIPHERAL [None]
  - POLYP [None]
  - RECTAL HAEMORRHAGE [None]
  - RETINAL DETACHMENT [None]
